FAERS Safety Report 6075779-6 (Version None)
Quarter: 2009Q1

REPORT INFORMATION
  Report Type: 
  Country: None (occurrence: None)
  Receive Date: 20090209
  Receipt Date: 20090129
  Transmission Date: 20090719
  Serious: Yes (Death)
  Sender: FDA-Public Use
  Company Number: CERZ-1000507

PATIENT
  Age: 4 Year
  Sex: Male
  Weight: 15 kg

DRUGS (1)
  1. CEREZYME [Suspect]
     Indication: GAUCHER'S DISEASE
     Dosage: 1800 U, Q2W, UNK
     Dates: start: 20071026, end: 20090119

REACTIONS (1)
  - DEATH [None]
